FAERS Safety Report 25570203 (Version 1)
Quarter: 2025Q3

REPORT INFORMATION
  Report Type: Spontaneous
  Country: US (occurrence: US)
  Receive Date: 20250717
  Receipt Date: 20250717
  Transmission Date: 20251021
  Serious: No
  Sender: SANDOZ
  Company Number: US-SANDOZ-SDZ2025US050188

PATIENT
  Age: 54 Year
  Sex: Female
  Weight: 164 kg

DRUGS (1)
  1. ESTRADIOL [Suspect]
     Active Substance: ESTRADIOL
     Indication: Hormone replacement therapy
     Dosage: 0.05 MG/KG, BIW
     Route: 062
     Dates: start: 20250609

REACTIONS (3)
  - Application site irritation [Not Recovered/Not Resolved]
  - Application site erythema [Not Recovered/Not Resolved]
  - Application site inflammation [Not Recovered/Not Resolved]

NARRATIVE: CASE EVENT DATE: 20250609
